FAERS Safety Report 5220579-X (Version None)
Quarter: 2007Q1

REPORT INFORMATION
  Report Type: 
  Country: None (occurrence: None)
  Receive Date: 20070125
  Receipt Date: 20070125
  Transmission Date: 20070707
  Serious: Yes (Hospitalization)
  Sender: FDA-Public Use
  Company Number: None

PATIENT
  Sex: Male
  Weight: 113.3993 kg

DRUGS (4)
  1. AUGMENTIN '125' [Suspect]
     Dosage: PO
     Route: 048
     Dates: start: 20060404
  2. VYTORIN [Concomitant]
  3. GLUCOSAMINE [Concomitant]
  4. VICODIN [Concomitant]

REACTIONS (4)
  - DYSPNOEA [None]
  - FACE OEDEMA [None]
  - LIP SWELLING [None]
  - SWOLLEN TONGUE [None]
